FAERS Safety Report 8492713-X (Version None)
Quarter: 2012Q3

REPORT INFORMATION
  Report Type: 
  Country: None (occurrence: None)
  Receive Date: 20120706
  Receipt Date: 20120626
  Transmission Date: 20120928
  Serious: Yes (Hospitalization)
  Sender: FDA-Public Use
  Company Number: IT-DENTSPLY-2012SCDP002960

PATIENT
  Sex: Male

DRUGS (1)
  1. MEPIVACAINE HCL [Suspect]
     Indication: DENTAL OPERATION
     Dosage: 1 DOSAGE UNIT (TOTAL)
     Route: 058
     Dates: start: 20120405, end: 20120405

REACTIONS (1)
  - SYNCOPE [None]
